FAERS Safety Report 9036985 (Version 4)
Quarter: 2013Q3

REPORT INFORMATION
  Report Type: Spontaneous
  Country: IE (occurrence: None)
  Receive Date: 20121213
  Receipt Date: 20130724
  Transmission Date: 20140515
  Serious: Yes (Other)
  Sender: FDA-Public Use
  Company Number: 2012034212

PATIENT
  Age: 21 Year
  Sex: Female

DRUGS (1)
  1. RHOPHYLAC [Suspect]
     Route: 030
     Dates: end: 20121109

REACTIONS (1)
  - Rhesus antibodies positive [None]
